FAERS Safety Report 19370725 (Version 3)
Quarter: 2021Q4

REPORT INFORMATION
  Report Type: Report from Study
  Country: KR (occurrence: KR)
  Receive Date: 20210604
  Receipt Date: 20211109
  Transmission Date: 20220303
  Serious: Yes (Other)
  Sender: FDA-Public Use
  Company Number: KR-KYOWAKIRIN-2021AKK009336

PATIENT
  Age: 71 Year
  Sex: Male

DRUGS (127)
  1. FILGRASTIM [Suspect]
     Active Substance: FILGRASTIM
     Indication: Product used for unknown indication
     Dosage: 300 UNK
     Route: 065
     Dates: start: 20110124, end: 20110124
  2. FILGRASTIM [Suspect]
     Active Substance: FILGRASTIM
     Dosage: 300 UNK
     Route: 065
     Dates: start: 20110207, end: 20110207
  3. FILGRASTIM [Suspect]
     Active Substance: FILGRASTIM
     Dosage: 300 UNK
     Route: 065
     Dates: start: 20110214, end: 20110214
  4. FILGRASTIM [Suspect]
     Active Substance: FILGRASTIM
     Dosage: 300 UNK
     Route: 065
     Dates: start: 20110307, end: 20110307
  5. FILGRASTIM [Suspect]
     Active Substance: FILGRASTIM
     Dosage: 300 UNK
     Route: 065
     Dates: start: 20110404, end: 20110404
  6. FILGRASTIM [Suspect]
     Active Substance: FILGRASTIM
     Dosage: 300 UNK
     Route: 065
     Dates: start: 20110411, end: 20110411
  7. FILGRASTIM [Suspect]
     Active Substance: FILGRASTIM
     Dosage: 300 UNK
     Route: 065
     Dates: start: 20110502, end: 20110502
  8. FILGRASTIM [Suspect]
     Active Substance: FILGRASTIM
     Dosage: 300 UNK
     Route: 065
     Dates: start: 20110509, end: 20110509
  9. FILGRASTIM [Suspect]
     Active Substance: FILGRASTIM
     Dosage: 300 UNK
     Route: 065
     Dates: start: 20110607, end: 20110607
  10. FILGRASTIM [Suspect]
     Active Substance: FILGRASTIM
     Dosage: 300 UNK
     Route: 065
     Dates: start: 20110613, end: 20110613
  11. FILGRASTIM [Suspect]
     Active Substance: FILGRASTIM
     Dosage: 300 UNK
     Route: 065
     Dates: start: 20110704, end: 20110704
  12. FILGRASTIM [Suspect]
     Active Substance: FILGRASTIM
     Dosage: 300 UNK
     Route: 065
     Dates: start: 20110718, end: 20110718
  13. FILGRASTIM [Suspect]
     Active Substance: FILGRASTIM
     Dosage: 300 UNK
     Route: 065
     Dates: start: 20111024, end: 20111024
  14. FILGRASTIM [Suspect]
     Active Substance: FILGRASTIM
     Dosage: 300 UNK
     Route: 065
     Dates: start: 20111121, end: 20111121
  15. FILGRASTIM [Suspect]
     Active Substance: FILGRASTIM
     Dosage: 300 UNK
     Route: 065
     Dates: start: 20111205, end: 20111205
  16. FILGRASTIM [Suspect]
     Active Substance: FILGRASTIM
     Dosage: 300 UNK
     Route: 065
     Dates: start: 20111219, end: 20111219
  17. FILGRASTIM [Suspect]
     Active Substance: FILGRASTIM
     Dosage: 300 UNK
     Route: 065
     Dates: start: 20120102, end: 20120102
  18. FILGRASTIM [Suspect]
     Active Substance: FILGRASTIM
     Dosage: 300 UNK
     Route: 065
     Dates: start: 20120126, end: 20120126
  19. FILGRASTIM [Suspect]
     Active Substance: FILGRASTIM
     Dosage: 300 UNK
     Route: 065
     Dates: start: 20120206, end: 20120206
  20. FILGRASTIM [Suspect]
     Active Substance: FILGRASTIM
     Dosage: 300 UNK
     Route: 065
     Dates: start: 20120227, end: 20120227
  21. FILGRASTIM [Suspect]
     Active Substance: FILGRASTIM
     Dosage: 300 UNK
     Route: 065
     Dates: start: 20120517, end: 20120517
  22. FILGRASTIM [Suspect]
     Active Substance: FILGRASTIM
     Dosage: 300 UNK
     Route: 065
     Dates: start: 20121203, end: 20121203
  23. FILGRASTIM [Suspect]
     Active Substance: FILGRASTIM
     Dosage: 300 UNK
     Route: 065
     Dates: start: 20121217, end: 20121217
  24. FILGRASTIM [Suspect]
     Active Substance: FILGRASTIM
     Dosage: 300 UNK
     Route: 065
     Dates: start: 20130404, end: 20130404
  25. FILGRASTIM [Suspect]
     Active Substance: FILGRASTIM
     Dosage: 300 UNK
     Route: 065
     Dates: start: 20130502, end: 20130502
  26. FILGRASTIM [Suspect]
     Active Substance: FILGRASTIM
     Dosage: 300 UNK
     Route: 065
     Dates: start: 20130513, end: 20130513
  27. DECITABINE [Concomitant]
     Active Substance: DECITABINE
     Indication: Product used for unknown indication
     Dosage: 20 UNK
     Route: 065
     Dates: start: 20110117, end: 20110121
  28. DECITABINE [Concomitant]
     Active Substance: DECITABINE
     Dosage: 20 UNK
     Route: 065
     Dates: start: 20110214, end: 20110218
  29. DECITABINE [Concomitant]
     Active Substance: DECITABINE
     Dosage: 20 UNK
     Route: 065
     Dates: start: 20110314, end: 20110318
  30. DECITABINE [Concomitant]
     Active Substance: DECITABINE
     Dosage: 20 UNK
     Route: 065
     Dates: start: 20110411, end: 20110415
  31. DECITABINE [Concomitant]
     Active Substance: DECITABINE
     Dosage: 20 UNK
     Route: 065
     Dates: start: 20110509, end: 20110513
  32. DECITABINE [Concomitant]
     Active Substance: DECITABINE
     Dosage: 20 UNK
     Route: 065
     Dates: start: 20110607, end: 20110611
  33. DECITABINE [Concomitant]
     Active Substance: DECITABINE
     Dosage: 20 UNK
     Route: 065
     Dates: start: 20110704, end: 20110708
  34. DECITABINE [Concomitant]
     Active Substance: DECITABINE
     Dosage: 20 UNK
     Route: 065
     Dates: start: 20110808, end: 20110812
  35. DECITABINE [Concomitant]
     Active Substance: DECITABINE
     Dosage: 20 UNK
     Route: 065
     Dates: start: 11000905, end: 20110909
  36. DECITABINE [Concomitant]
     Active Substance: DECITABINE
     Dosage: 20 UNK
     Route: 065
     Dates: start: 20111004, end: 20111007
  37. DECITABINE [Concomitant]
     Active Substance: DECITABINE
     Dosage: 20 UNK
     Route: 065
     Dates: start: 20111107, end: 20111111
  38. DECITABINE [Concomitant]
     Active Substance: DECITABINE
     Dosage: 20 UNK
     Route: 065
     Dates: start: 20111205, end: 20111209
  39. DECITABINE [Concomitant]
     Active Substance: DECITABINE
     Dosage: 20 UNK
     Route: 065
     Dates: start: 20120109, end: 20120113
  40. DECITABINE [Concomitant]
     Active Substance: DECITABINE
     Dosage: 20 UNK
     Route: 065
     Dates: start: 20120213, end: 20120217
  41. DECITABINE [Concomitant]
     Active Substance: DECITABINE
     Dosage: 20 UNK
     Route: 065
     Dates: start: 20120319, end: 20120323
  42. DECITABINE [Concomitant]
     Active Substance: DECITABINE
     Dosage: 20 UNK
     Route: 065
     Dates: start: 20120423, end: 20120427
  43. DECITABINE [Concomitant]
     Active Substance: DECITABINE
     Dosage: 20 UNK
     Route: 065
     Dates: start: 20120604, end: 20120605
  44. DECITABINE [Concomitant]
     Active Substance: DECITABINE
     Dosage: 20 UNK
     Route: 065
     Dates: start: 20120607, end: 20120608
  45. DECITABINE [Concomitant]
     Active Substance: DECITABINE
     Dosage: 20 UNK
     Route: 065
     Dates: start: 20120709, end: 20120713
  46. DECITABINE [Concomitant]
     Active Substance: DECITABINE
     Dosage: 20 UNK
     Route: 065
     Dates: start: 20120806, end: 20120810
  47. DECITABINE [Concomitant]
     Active Substance: DECITABINE
     Dosage: 20 UNK
     Route: 065
     Dates: start: 20120903, end: 20120907
  48. DECITABINE [Concomitant]
     Active Substance: DECITABINE
     Dosage: 20 UNK
     Route: 065
     Dates: start: 20130906, end: 20130906
  49. ACYCLOVIR [Concomitant]
     Active Substance: ACYCLOVIR
     Indication: Product used for unknown indication
     Dosage: 400 MILLIGRAM
     Route: 065
     Dates: start: 20110107, end: 20110213
  50. ACYCLOVIR [Concomitant]
     Active Substance: ACYCLOVIR
     Dosage: 400 MILLIGRAM
     Route: 065
     Dates: start: 20110224, end: 20110313
  51. ACYCLOVIR [Concomitant]
     Active Substance: ACYCLOVIR
     Dosage: 400 MILLIGRAM
     Route: 065
     Dates: start: 20110314, end: 20110410
  52. ACYCLOVIR [Concomitant]
     Active Substance: ACYCLOVIR
     Dosage: 400 MILLIGRAM
     Route: 065
     Dates: start: 20110411, end: 20110508
  53. ACYCLOVIR [Concomitant]
     Active Substance: ACYCLOVIR
     Dosage: 400 MILLIGRAM
     Route: 065
     Dates: start: 20110509, end: 20110606
  54. ACYCLOVIR [Concomitant]
     Active Substance: ACYCLOVIR
     Dosage: 400 MILLIGRAM
     Route: 065
     Dates: start: 20110704, end: 20110807
  55. ACYCLOVIR [Concomitant]
     Active Substance: ACYCLOVIR
     Dosage: 400 MILLIGRAM
     Route: 065
     Dates: start: 20110808, end: 20110904
  56. ACYCLOVIR [Concomitant]
     Active Substance: ACYCLOVIR
     Dosage: 400 MILLIGRAM
     Route: 065
     Dates: start: 20120109, end: 20120212
  57. ACYCLOVIR [Concomitant]
     Active Substance: ACYCLOVIR
     Dosage: 400 MILLIGRAM
     Route: 065
     Dates: start: 20120319, end: 20120422
  58. ACYCLOVIR [Concomitant]
     Active Substance: ACYCLOVIR
     Dosage: 400 MILLIGRAM
     Route: 065
     Dates: start: 20120709, end: 20120805
  59. ACYCLOVIR [Concomitant]
     Active Substance: ACYCLOVIR
     Dosage: 400 MILLIGRAM
     Route: 065
     Dates: start: 20130304, end: 20130414
  60. ACYCLOVIR [Concomitant]
     Active Substance: ACYCLOVIR
     Dosage: 400 MILLIGRAM
     Route: 065
     Dates: start: 13130415, end: 20130424
  61. ACYCLOVIR [Concomitant]
     Active Substance: ACYCLOVIR
     Dosage: 400 MILLIGRAM
     Route: 065
     Dates: start: 20130502, end: 20130526
  62. ACYCLOVIR [Concomitant]
     Active Substance: ACYCLOVIR
     Dosage: 400 MILLIGRAM
     Route: 065
     Dates: start: 20130603, end: 20130714
  63. ACYCLOVIR [Concomitant]
     Active Substance: ACYCLOVIR
     Dosage: 400 MILLIGRAM
     Route: 065
     Dates: start: 20130715, end: 20130901
  64. ACYCLOVIR [Concomitant]
     Active Substance: ACYCLOVIR
     Dosage: 400 MILLIGRAM
     Route: 065
     Dates: start: 20130902, end: 20131013
  65. CLOPERASTINE [Concomitant]
     Active Substance: CLOPERASTINE
     Indication: Product used for unknown indication
     Dosage: 24 UNK
     Route: 065
     Dates: start: 20110808, end: 20110815
  66. CLOPERASTINE [Concomitant]
     Active Substance: CLOPERASTINE
     Dosage: 625 MILLIGRAM
     Route: 065
     Dates: start: 20111219, end: 20120101
  67. CLOPERASTINE [Concomitant]
     Active Substance: CLOPERASTINE
     Dosage: 1250 MILLIGRAM
     Route: 065
     Dates: start: 20120102, end: 20130403
  68. CLOPERASTINE [Concomitant]
     Active Substance: CLOPERASTINE
     Dosage: 1250 MILLIGRAM
     Route: 065
     Dates: start: 20130415, end: 20130424
  69. CLOPERASTINE [Concomitant]
     Active Substance: CLOPERASTINE
     Dosage: 1250 MILLIGRAM
     Route: 065
     Dates: start: 20130502, end: 20130519
  70. CLOPERASTINE [Concomitant]
     Active Substance: CLOPERASTINE
     Dosage: 1250 MILLIGRAM
     Route: 065
     Dates: start: 20130603, end: 20130925
  71. DESONIDE [Concomitant]
     Active Substance: DESONIDE
     Indication: Product used for unknown indication
     Dosage: 120 UNK
     Route: 065
     Dates: start: 20110314, end: 20110320
  72. DICLOFENAC [Concomitant]
     Active Substance: DICLOFENAC
     Indication: Product used for unknown indication
     Dosage: 75 MILLIGRAM
     Route: 065
     Dates: start: 20130129, end: 20130129
  73. FAT EMULSION NOS [Concomitant]
     Active Substance: EGG PHOSPHOLIPIDS\SAFFLOWER OIL\SOYBEAN OIL
     Indication: Product used for unknown indication
     Dosage: 500 UNK
     Route: 065
     Dates: start: 20110801, end: 20110801
  74. FAT EMULSION NOS [Concomitant]
     Active Substance: EGG PHOSPHOLIPIDS\SAFFLOWER OIL\SOYBEAN OIL
     Dosage: 500 UNK
     Route: 065
     Dates: start: 20110808, end: 20110808
  75. FAT EMULSION NOS [Concomitant]
     Active Substance: EGG PHOSPHOLIPIDS\SAFFLOWER OIL\SOYBEAN OIL
     Dosage: 500 UNK
     Route: 065
     Dates: start: 20110905, end: 20110905
  76. FAT EMULSION NOS [Concomitant]
     Active Substance: EGG PHOSPHOLIPIDS\SAFFLOWER OIL\SOYBEAN OIL
     Dosage: 500 UNK
     Route: 065
     Dates: start: 20110919, end: 20110919
  77. FAT EMULSION NOS [Concomitant]
     Active Substance: EGG PHOSPHOLIPIDS\SAFFLOWER OIL\SOYBEAN OIL
     Dosage: 500 UNK
     Route: 065
     Dates: start: 20110926, end: 20110926
  78. FAT EMULSION NOS [Concomitant]
     Active Substance: EGG PHOSPHOLIPIDS\SAFFLOWER OIL\SOYBEAN OIL
     Dosage: 500 UNK
     Route: 065
     Dates: start: 20111004, end: 20111004
  79. FAT EMULSION NOS [Concomitant]
     Active Substance: EGG PHOSPHOLIPIDS\SAFFLOWER OIL\SOYBEAN OIL
     Dosage: 500 UNK
     Route: 065
     Dates: start: 20111017, end: 20111017
  80. FAT EMULSION NOS [Concomitant]
     Active Substance: EGG PHOSPHOLIPIDS\SAFFLOWER OIL\SOYBEAN OIL
     Dosage: 500 UNK
     Route: 065
     Dates: start: 20111024, end: 20111024
  81. FEXOFENADINE [Concomitant]
     Active Substance: FEXOFENADINE HYDROCHLORIDE
     Indication: Product used for unknown indication
     Dosage: 180 MILLIGRAM
     Route: 065
     Dates: start: 20110321, end: 20110327
  82. HYDROCORTISONE [Concomitant]
     Active Substance: HYDROCORTISONE
     Indication: Product used for unknown indication
     Dosage: 60 UNK
     Route: 065
     Dates: start: 20110321, end: 20110327
  83. ITRACONAZOLE [Concomitant]
     Active Substance: ITRACONAZOLE
     Indication: Product used for unknown indication
     Dosage: 20 UNK
     Route: 065
     Dates: start: 20110117, end: 20110213
  84. ITRACONAZOLE [Concomitant]
     Active Substance: ITRACONAZOLE
     Dosage: 20 UNK
     Route: 065
     Dates: start: 20110117, end: 20110213
  85. ITRACONAZOLE [Concomitant]
     Active Substance: ITRACONAZOLE
     Dosage: 200 MILLIGRAM
     Route: 065
     Dates: start: 20110314, end: 20110410
  86. ITRACONAZOLE [Concomitant]
     Active Substance: ITRACONAZOLE
     Dosage: 200 MILLIGRAM
     Route: 065
     Dates: start: 20110411, end: 20110508
  87. ITRACONAZOLE [Concomitant]
     Active Substance: ITRACONAZOLE
     Dosage: 200 MILLIGRAM
     Route: 065
     Dates: start: 20110509, end: 20110606
  88. ITRACONAZOLE [Concomitant]
     Active Substance: ITRACONAZOLE
     Dosage: 200 MILLIGRAM
     Route: 065
     Dates: start: 20110607, end: 20110703
  89. ITRACONAZOLE [Concomitant]
     Active Substance: ITRACONAZOLE
     Dosage: 200 MILLIGRAM
     Route: 065
     Dates: start: 20120109, end: 20120212
  90. ITRACONAZOLE [Concomitant]
     Active Substance: ITRACONAZOLE
     Dosage: 200 MILLIGRAM
     Route: 065
     Dates: start: 20120213, end: 20120318
  91. ITRACONAZOLE [Concomitant]
     Active Substance: ITRACONAZOLE
     Dosage: 200 MILLIGRAM
     Route: 065
     Dates: start: 20120319, end: 20120422
  92. ITRACONAZOLE [Concomitant]
     Active Substance: ITRACONAZOLE
     Dosage: 200 MILLIGRAM
     Route: 065
     Dates: start: 20120423, end: 20120603
  93. ITRACONAZOLE [Concomitant]
     Active Substance: ITRACONAZOLE
     Dosage: 200 MILLIGRAM
     Route: 065
     Dates: start: 20120604, end: 20120708
  94. ITRACONAZOLE [Concomitant]
     Active Substance: ITRACONAZOLE
     Dosage: 200 MILLIGRAM
     Route: 065
     Dates: start: 20130128, end: 20130303
  95. ITRACONAZOLE [Concomitant]
     Active Substance: ITRACONAZOLE
     Dosage: 200 MILLIGRAM
     Route: 065
     Dates: start: 20130304, end: 20130414
  96. ITRACONAZOLE [Concomitant]
     Active Substance: ITRACONAZOLE
     Dosage: 400 MILLIGRAM
     Route: 065
     Dates: start: 20130415, end: 20130424
  97. ITRACONAZOLE [Concomitant]
     Active Substance: ITRACONAZOLE
     Dosage: 400 MILLIGRAM
     Route: 065
     Dates: start: 20130603, end: 20130714
  98. ITRACONAZOLE [Concomitant]
     Active Substance: ITRACONAZOLE
     Dosage: 200 MILLIGRAM
     Route: 065
     Dates: start: 20130902, end: 20130911
  99. KETOTIFEN [Concomitant]
     Active Substance: KETOTIFEN
     Indication: Product used for unknown indication
     Dosage: 2 MILLIGRAM
     Route: 065
     Dates: start: 20110207, end: 20130403
  100. KETOTIFEN [Concomitant]
     Active Substance: KETOTIFEN
     Dosage: 2 MILLIGRAM
     Route: 065
     Dates: start: 20130415, end: 20130424
  101. KETOTIFEN [Concomitant]
     Active Substance: KETOTIFEN
     Dosage: 2 MILLIGRAM
     Route: 065
     Dates: start: 20130502, end: 20130519
  102. KETOTIFEN [Concomitant]
     Active Substance: KETOTIFEN
     Dosage: 2 MILLIGRAM
     Route: 065
     Dates: start: 20130603
  103. LENOGRASTIM [Concomitant]
     Active Substance: LENOGRASTIM
     Indication: Product used for unknown indication
     Dosage: 250 UNK
     Route: 065
     Dates: start: 20120312, end: 20120312
  104. LENOGRASTIM [Concomitant]
     Active Substance: LENOGRASTIM
     Dosage: 250 UNK
     Route: 065
     Dates: start: 20120625, end: 20120625
  105. LENOGRASTIM [Concomitant]
     Active Substance: LENOGRASTIM
     Dosage: 250 UNK
     Route: 065
     Dates: start: 20120927, end: 20120927
  106. LENOGRASTIM [Concomitant]
     Active Substance: LENOGRASTIM
     Dosage: 250 UNK
     Route: 065
     Dates: start: 20130214, end: 20130214
  107. LENOGRASTIM [Concomitant]
     Active Substance: LENOGRASTIM
     Dosage: 250 UNK
     Route: 065
     Dates: start: 20130617, end: 20130617
  108. LENOGRASTIM [Concomitant]
     Active Substance: LENOGRASTIM
     Dosage: 250 UNK
     Route: 065
     Dates: start: 20130729, end: 20130729
  109. LENOGRASTIM [Concomitant]
     Active Substance: LENOGRASTIM
     Dosage: 250 UNK
     Route: 065
     Dates: start: 20130819, end: 20130819
  110. LENOGRASTIM [Concomitant]
     Active Substance: LENOGRASTIM
     Dosage: 250 UNK
     Route: 065
     Dates: start: 20130912, end: 20130912
  111. MAGNESIUM HYDROXIDE [Concomitant]
     Active Substance: MAGNESIUM HYDROXIDE
     Indication: Product used for unknown indication
     Dosage: 1500 UNK
     Route: 065
     Dates: start: 20110404, end: 20130403
  112. MAGNESIUM HYDROXIDE [Concomitant]
     Active Substance: MAGNESIUM HYDROXIDE
     Dosage: 1500 UNK
     Route: 065
     Dates: start: 20130415, end: 20130424
  113. MAGNESIUM HYDROXIDE [Concomitant]
     Active Substance: MAGNESIUM HYDROXIDE
     Dosage: 1500 UNK
     Route: 065
     Dates: start: 20130502, end: 20130519
  114. MAGNESIUM HYDROXIDE [Concomitant]
     Active Substance: MAGNESIUM HYDROXIDE
     Dosage: 1500 UNK
     Route: 065
     Dates: start: 20130603
  115. MEGESTROL [Concomitant]
     Active Substance: MEGESTROL
     Indication: Product used for unknown indication
     Dosage: 20 UNK
     Route: 065
     Dates: start: 20110808, end: 20110815
  116. MEGESTROL [Concomitant]
     Active Substance: MEGESTROL
     Dosage: 20 UNK
     Route: 065
     Dates: start: 20110825, end: 20110918
  117. MEGESTROL [Concomitant]
     Active Substance: MEGESTROL
     Dosage: 40 UNK
     Route: 065
     Dates: start: 20121105, end: 20121231
  118. MEGESTROL [Concomitant]
     Active Substance: MEGESTROL
     Dosage: 5 UNK
     Route: 065
     Dates: start: 20130527, end: 20130602
  119. MEGESTROL [Concomitant]
     Active Substance: MEGESTROL
     Dosage: 5 UNK
     Route: 065
     Dates: start: 20130617, end: 20130630
  120. MEGESTROL [Concomitant]
     Active Substance: MEGESTROL
     Dosage: 5 UNK
     Route: 065
     Dates: start: 20130819, end: 20130825
  121. MEGESTROL [Concomitant]
     Active Substance: MEGESTROL
     Dosage: 5 UNK
     Route: 065
     Dates: start: 20130902, end: 20130911
  122. ACETAMINOPHEN [Concomitant]
     Active Substance: ACETAMINOPHEN
     Indication: Product used for unknown indication
     Dosage: 1300 MILLIGRAM
     Route: 065
     Dates: start: 20110801, end: 20110801
  123. PREDNICARBATE [Concomitant]
     Active Substance: PREDNICARBATE
     Indication: Product used for unknown indication
     Dosage: UNK
     Route: 065
     Dates: start: 20110321, end: 20110327
  124. SODIUM PHOSPHATE [Concomitant]
     Active Substance: SODIUM PHOSPHATE
     Indication: Product used for unknown indication
     Dosage: 90 UNK
     Route: 065
     Dates: start: 20110718, end: 20110718
  125. ACETAMINOPHEN\TRAMADOL [Concomitant]
     Active Substance: ACETAMINOPHEN\TRAMADOL
     Indication: Product used for unknown indication
     Dosage: 3 DOSAGE FORM
     Route: 065
     Dates: start: 20130129, end: 20130204
  126. ACETAMINOPHEN\TRAMADOL [Concomitant]
     Active Substance: ACETAMINOPHEN\TRAMADOL
     Dosage: 3 DOSAGE FORM
     Route: 065
     Dates: start: 20130207, end: 20130213
  127. ACETAMINOPHEN\TRAMADOL [Concomitant]
     Active Substance: ACETAMINOPHEN\TRAMADOL
     Dosage: 3 DOSAGE FORM
     Route: 065
     Dates: start: 20130304, end: 20130313

REACTIONS (27)
  - Neutropenia [Recovered/Resolved]
  - Neutropenia [Recovered/Resolved]
  - Neutropenia [Recovered/Resolved]
  - Neutropenia [Recovered/Resolved]
  - Neutropenia [Recovered/Resolved]
  - Neutropenia [Recovered/Resolved]
  - Neutropenia [Recovered/Resolved]
  - Neutropenia [Recovered/Resolved]
  - Pruritus [Recovered/Resolved]
  - Pain [Recovered/Resolved]
  - Dizziness [Recovered/Resolved]
  - Constipation [Recovered/Resolved]
  - Dyspnoea [Recovered/Resolved]
  - Large intestine polyp [Recovered/Resolved]
  - Application site pain [Recovered/Resolved]
  - Fatigue [Recovered/Resolved]
  - Asthenia [Recovered/Resolved]
  - Pruritus [Recovered/Resolved]
  - Dizziness [Recovered/Resolved]
  - Dyspnoea [Recovered/Resolved]
  - Dyspnoea [Recovered/Resolved]
  - Dyspnoea [Recovered/Resolved]
  - Dyspnoea [Recovered/Resolved]
  - Dyspnoea [Recovered/Resolved]
  - Dyspnoea [Recovered/Resolved]
  - Dyspnoea [Not Recovered/Not Resolved]
  - Asthenia [Not Recovered/Not Resolved]

NARRATIVE: CASE EVENT DATE: 20110207
